FAERS Safety Report 6589659-0 (Version None)
Quarter: 2010Q1

REPORT INFORMATION
  Report Type: 
  Country: None (occurrence: None)
  Receive Date: 20100219
  Receipt Date: 20100209
  Transmission Date: 20100710
  Serious: Yes (Hospitalization)
  Sender: FDA-Public Use
  Company Number: US-JNJCH-2010003886

PATIENT
  Age: 2 Year

DRUGS (1)
  1. ACETYLSALICYLIC ACID [Suspect]
     Indication: OTITIS MEDIA
     Dosage: TEXT:0.96 GM - UNSPECIFIED
     Route: 065

REACTIONS (2)
  - THERAPEUTIC AGENT TOXICITY [None]
  - WRONG DRUG ADMINISTERED [None]
